FAERS Safety Report 9645627 (Version 3)
Quarter: 2014Q1

REPORT INFORMATION
  Report Type: Report from Study
  Country: PT (occurrence: PT)
  Receive Date: 20131025
  Receipt Date: 20140122
  Transmission Date: 20141002
  Serious: Yes (Death)
  Sender: FDA-Public Use
  Company Number: PT-SA-CAMP-1003105

PATIENT
  Age: 62 Year
  Sex: Female

DRUGS (2)
  1. CAMPATH [Suspect]
     Indication: MYCOSIS FUNGOIDES
     Dosage: FOR FIRST AND SECOND WEEKS
     Route: 065
  2. CAMPATH [Suspect]
     Indication: MYCOSIS FUNGOIDES
     Dosage: FOR THIRD TO SIXTH WEEKS
     Route: 065
     Dates: end: 2013

REACTIONS (2)
  - Death [Fatal]
  - Off label use [Unknown]
